FAERS Safety Report 12412913 (Version 6)
Quarter: 2016Q4

REPORT INFORMATION
  Report Type: Spontaneous
  Country: US (occurrence: US)
  Receive Date: 20160527
  Receipt Date: 20161123
  Transmission Date: 20170207
  Serious: Yes (Other)
  Sender: FDA-Public Use
  Company Number: US-PFIZER INC-2016275440

PATIENT
  Age: 81 Year
  Sex: Female

DRUGS (13)
  1. IBRANCE [Suspect]
     Active Substance: PALBOCICLIB
     Indication: BREAST CANCER FEMALE
     Dosage: 125 MG, DAILY, CYCLIC (21 DAYS, THEN 7 DAYS OFF.)
     Route: 048
     Dates: start: 20160525
  2. MIRALAX [Concomitant]
     Active Substance: POLYETHYLENE GLYCOL 3350
     Dosage: UNK
  3. FLECAINIDE ACETATE. [Concomitant]
     Active Substance: FLECAINIDE ACETATE
  4. MULTI VITAMIN WITH FLUORIDE [Concomitant]
     Active Substance: .ALPHA.-TOCOPHEROL ACETATE, DL-\ASCORBIC ACID\CHOLECALCIFEROL\CYANOCOBALAMIN\FOLIC ACID\NIACINAMIDE\PYRIDOXINE HYDROCHLORIDE\RIBOFLAVIN\SODIUM ASCORBATE\SODIUM FLUORIDE\THIAMINE MONONITRATE\VITAMIN A ACETATE
  5. OMEPRAZOLE. [Concomitant]
     Active Substance: OMEPRAZOLE
     Dosage: UNK
  6. METOPROLOL TARTRATE. [Concomitant]
     Active Substance: METOPROLOL TARTRATE
  7. MIRAPEX [Concomitant]
     Active Substance: PRAMIPEXOLE DIHYDROCHLORIDE
  8. TYLENOL EXTRA STRENGTH [Concomitant]
     Active Substance: ACETAMINOPHEN
  9. FASLODEX [Concomitant]
     Active Substance: FULVESTRANT
     Dosage: UNK
  10. FLONASE ALLERGY RELIEF [Concomitant]
     Active Substance: FLUTICASONE PROPIONATE
     Dosage: UNK
  11. LEVOTHYROXINE SODIUM. [Concomitant]
     Active Substance: LEVOTHYROXINE SODIUM
  12. ELIQUIS [Concomitant]
     Active Substance: APIXABAN
  13. PROTONIX [Concomitant]
     Active Substance: PANTOPRAZOLE SODIUM

REACTIONS (10)
  - Fatigue [Unknown]
  - Oropharyngeal pain [Unknown]
  - Dry skin [Unknown]
  - Diarrhoea [Unknown]
  - Alopecia [Unknown]
  - Atrial fibrillation [Unknown]
  - Nasopharyngitis [Unknown]
  - Vitreous floaters [Unknown]
  - Platelet count increased [Unknown]
  - Urinary tract infection [Unknown]

NARRATIVE: CASE EVENT DATE: 201605
